FAERS Safety Report 11622485 (Version 1)
Quarter: 2015Q4

REPORT INFORMATION
  Report Type: Spontaneous
  Country: US (occurrence: US)
  Receive Date: 20151013
  Receipt Date: 20151013
  Transmission Date: 20160304
  Serious: No
  Sender: FDA-Public Use
  Company Number: US-JNJFOC-20150419672

PATIENT
  Age: 2 Year
  Sex: Male
  Weight: 14.52 kg

DRUGS (4)
  1. INFANTS TYLENOL [Suspect]
     Active Substance: ACETAMINOPHEN
     Indication: PAIN IN EXTREMITY
     Dosage: 1TSP
     Route: 048
     Dates: start: 20150415, end: 20150419
  2. INFANTS TYLENOL [Suspect]
     Active Substance: ACETAMINOPHEN
     Indication: ORAL PAIN
     Dosage: 1TSP
     Route: 048
     Dates: start: 20150415, end: 20150419
  3. INFANTS TYLENOL [Suspect]
     Active Substance: ACETAMINOPHEN
     Indication: OROPHARYNGEAL PAIN
     Dosage: 1TSP
     Route: 048
     Dates: start: 20150415, end: 20150419
  4. INFANTS TYLENOL [Suspect]
     Active Substance: ACETAMINOPHEN
     Indication: PAIN IN EXTREMITY
     Dosage: 1TSP
     Route: 048
     Dates: start: 20150415, end: 20150419

REACTIONS (1)
  - Abdominal pain [Recovered/Resolved]

NARRATIVE: CASE EVENT DATE: 20150415
